FAERS Safety Report 13152014 (Version 1)
Quarter: 2017Q1

REPORT INFORMATION
  Report Type: Spontaneous
  Country: FR (occurrence: FR)
  Receive Date: 20170125
  Receipt Date: 20170125
  Transmission Date: 20170428
  Serious: Yes (Hospitalization)
  Sender: FDA-Public Use
  Company Number: FR-PFIZER INC-2017027613

PATIENT
  Age: 85 Year
  Sex: Female

DRUGS (5)
  1. AMLOR [Suspect]
     Active Substance: AMLODIPINE BESYLATE
     Indication: HYPERTENSION
     Dosage: 10 MG, 1X/DAY
     Route: 048
     Dates: start: 20161206
  2. CALCIPARINE [Suspect]
     Active Substance: HEPARIN CALCIUM
     Indication: FALL
     Dosage: UNK
     Route: 058
     Dates: start: 20161206, end: 20161210
  3. PARACETAMOL [Concomitant]
     Active Substance: ACETAMINOPHEN
     Dosage: 1 G THRICE DAILY AS NEEDED
     Route: 048
  4. SERESTA [Concomitant]
     Active Substance: OXAZEPAM
     Dosage: 10 MG, AS NEEDED
     Route: 048
  5. ENALAPRIL MALEATE. [Concomitant]
     Active Substance: ENALAPRIL MALEATE
     Dosage: 20 MG, 1X/DAY
     Route: 048

REACTIONS (4)
  - Toxic skin eruption [Recovering/Resolving]
  - Injection site vesicles [Recovering/Resolving]
  - Dermatitis allergic [Recovering/Resolving]
  - Rash maculo-papular [Recovering/Resolving]

NARRATIVE: CASE EVENT DATE: 20161211
